FAERS Safety Report 9607617 (Version 1)
Quarter: 2013Q4

REPORT INFORMATION
  Report Type: Report from Study
  Country: US (occurrence: US)
  Receive Date: 20131009
  Receipt Date: 20131009
  Transmission Date: 20140711
  Serious: Yes (Other)
  Sender: FDA-Public Use
  Company Number: PHHY2013US112438

PATIENT
  Sex: Female

DRUGS (9)
  1. GILENYA [Suspect]
     Indication: MULTIPLE SCLEROSIS
     Dosage: 0.5 MG, UNK
     Route: 048
     Dates: start: 20130830
  2. CELEXA [Concomitant]
  3. VIT D [Concomitant]
  4. FISH OIL [Concomitant]
  5. APOVIT CALCIUM [Concomitant]
  6. VIT C [Concomitant]
  7. BETHANECHOL [Concomitant]
  8. ALPRAZOLAM [Concomitant]
  9. MACROBID [Concomitant]

REACTIONS (1)
  - Mammogram abnormal [Not Recovered/Not Resolved]
